FAERS Safety Report 11854058 (Version 1)
Quarter: 2015Q4

REPORT INFORMATION
  Report Type: Spontaneous
  Country: US (occurrence: US)
  Receive Date: 20151219
  Receipt Date: 20151219
  Transmission Date: 20160305
  Serious: No
  Sender: FDA-Public Use
  Company Number: US-BAUSCH-BL-2015-023356

PATIENT
  Age: 17 Year
  Sex: Male

DRUGS (1)
  1. XENAZINE [Suspect]
     Active Substance: TETRABENAZINE
     Indication: TORTICOLLIS
     Route: 048
     Dates: start: 20150729, end: 201509

REACTIONS (5)
  - Decreased activity [Unknown]
  - Feeding tube complication [Unknown]
  - Off label use [Recovered/Resolved]
  - Vomiting [Unknown]
  - Nausea [Unknown]

NARRATIVE: CASE EVENT DATE: 20150729
